FAERS Safety Report 9337657 (Version 1)
Quarter: 2013Q2

REPORT INFORMATION
  Report Type: Spontaneous
  Country: US (occurrence: US)
  Receive Date: 20130607
  Receipt Date: 20130607
  Transmission Date: 20140414
  Serious: Yes (Life-Threatening, Hospitalization)
  Sender: FDA-Public Use
  Company Number: 2013SP001630

PATIENT
  Age: 64 Year
  Sex: Female
  Weight: 36 kg

DRUGS (7)
  1. LEVALBUTEROL INHALATION SOLUTION [Suspect]
     Indication: ASTHMA
     Route: 055
     Dates: start: 201303, end: 201303
  2. LEVALBUTEROL INHALATION SOLUTION [Suspect]
     Indication: BRONCHITIS
     Route: 055
     Dates: start: 201303, end: 201303
  3. LEVOTHYROXINE [Concomitant]
     Indication: THYROID CANCER
  4. ADVAIR [Concomitant]
     Indication: ASTHMA
     Route: 055
  5. SPIRIVA [Concomitant]
     Indication: ASTHMA
     Route: 055
  6. PRO-AIR [Concomitant]
     Indication: ASTHMA
     Route: 055
  7. ACIDOPHILUS [Concomitant]
     Indication: PRODUCT USED FOR UNKNOWN INDICATION

REACTIONS (5)
  - Cardiac arrest [Recovered/Resolved]
  - Cyanosis [Recovered/Resolved]
  - Loss of consciousness [Recovered/Resolved]
  - Feeling abnormal [Recovered/Resolved]
  - Asthenia [Recovered/Resolved]
